FAERS Safety Report 5834083-9 (Version None)
Quarter: 2008Q3

REPORT INFORMATION
  Report Type: 
  Country: None (occurrence: None)
  Receive Date: 20080805
  Receipt Date: 20080729
  Transmission Date: 20090109
  Serious: Yes (Other)
  Sender: FDA-Public Use
  Company Number: AU-ASTRAZENECA-2008AP05845

PATIENT
  Age: 67 Year
  Sex: Male

DRUGS (3)
  1. NAROPIN [Suspect]
     Dosage: 30ML
     Route: 053
     Dates: start: 20080729
  2. MIDAZOLAM HCL [Suspect]
     Route: 065
     Dates: start: 20080729, end: 20080729
  3. FENTANYL-100 [Concomitant]
     Dates: start: 20080729, end: 20080729

REACTIONS (7)
  - ABNORMAL BEHAVIOUR [None]
  - CONVULSION [None]
  - CRYING [None]
  - DELUSION OF GRANDEUR [None]
  - HYPERTENSION [None]
  - REPETITIVE SPEECH [None]
  - TACHYCARDIA [None]
